FAERS Safety Report 19449997 (Version 2)
Quarter: 2024Q3

REPORT INFORMATION
  Report Type: Spontaneous
  Country: US (occurrence: US)
  Receive Date: 20210622
  Receipt Date: 20240730
  Transmission Date: 20241017
  Serious: No
  Sender: SANOFI AVENTIS
  Company Number: US-SA-SAC20210621000150

PATIENT
  Age: 40 Year
  Sex: Female

DRUGS (1)
  1. DUPIXENT [Suspect]
     Active Substance: DUPILUMAB
     Indication: Sinus polyp
     Dosage: 300 MG, QOW
     Route: 058
     Dates: start: 20201023

REACTIONS (3)
  - Vitreous floaters [Recovered/Resolved]
  - Vision blurred [Unknown]
  - Product use issue [Unknown]

NARRATIVE: CASE EVENT DATE: 20210515
